FAERS Safety Report 16922277 (Version 1)
Quarter: 2019Q4

REPORT INFORMATION
  Report Type: Report from Study
  Country: None (occurrence: US)
  Receive Date: 20191015
  Receipt Date: 20191015
  Transmission Date: 20200122
  Serious: Yes (Other)
  Sender: FDA-Public Use
  Company Number: US-ABBVIE-19K-163-2962538-00

PATIENT
  Age: 53 Year
  Sex: Female

DRUGS (1)
  1. HUMIRA [Suspect]
     Active Substance: ADALIMUMAB
     Indication: PSORIATIC ARTHROPATHY
     Route: 058
     Dates: start: 20181201

REACTIONS (4)
  - Hysterectomy [Unknown]
  - Nasopharyngitis [Unknown]
  - Precancerous cells present [Unknown]
  - Tinnitus [Unknown]

NARRATIVE: CASE EVENT DATE: 2019
